FAERS Safety Report 9692948 (Version 1)
Quarter: 2013Q4

REPORT INFORMATION
  Report Type: Spontaneous
  Country: US (occurrence: US)
  Receive Date: 20131118
  Receipt Date: 20131118
  Transmission Date: 20140711
  Serious: No
  Sender: FDA-Public Use
  Company Number: US-GLAXOSMITHKLINE-A1042158A

PATIENT
  Sex: Female

DRUGS (1)
  1. COREG CR [Suspect]
     Indication: CONSTIPATION
     Dosage: 40MG UNKNOWN
     Route: 065
     Dates: start: 20121116

REACTIONS (1)
  - Adverse drug reaction [Unknown]
